FAERS Safety Report 23982185 (Version 2)
Quarter: 2024Q3

REPORT INFORMATION
  Report Type: Report from Study
  Country: CA (occurrence: CA)
  Receive Date: 20240617
  Receipt Date: 20240814
  Transmission Date: 20241016
  Serious: Yes (Other)
  Sender: OTSUKA
  Company Number: CA-OTSUKA-2024_005324

PATIENT
  Age: 76 Year
  Sex: Male

DRUGS (2)
  1. TOLVAPTAN [Suspect]
     Active Substance: TOLVAPTAN
     Indication: Congenital cystic kidney disease
     Dosage: 45 MG, QD (IN THE MORNING)
     Route: 048
  2. TOLVAPTAN [Suspect]
     Active Substance: TOLVAPTAN
     Dosage: 15 MG, QD (8 HOURS LATER IN THE EVENING)
     Route: 048

REACTIONS (5)
  - Metastases to liver [Unknown]
  - Blood alkaline phosphatase abnormal [Unknown]
  - Aspartate aminotransferase abnormal [Unknown]
  - Alanine aminotransferase increased [Recovered/Resolved]
  - Alanine aminotransferase increased [Not Recovered/Not Resolved]

NARRATIVE: CASE EVENT DATE: 20240208
